FAERS Safety Report 22264985 (Version 3)
Quarter: 2023Q2

REPORT INFORMATION
  Report Type: Report from Study
  Country: CN (occurrence: CN)
  Receive Date: 20230428
  Receipt Date: 20230525
  Transmission Date: 20230721
  Serious: Yes (Hospitalization)
  Sender: FDA-Public Use
  Company Number: CN-JNJFOC-20230450620

PATIENT
  Age: 65 Year
  Sex: Male
  Weight: 62.5 kg

DRUGS (8)
  1. PLACEBO [Suspect]
     Active Substance: UNSPECIFIED INGREDIENT
     Indication: Hormone-refractory prostate cancer
     Dosage: MOST RECENT DOSE ON 28-MAR-2023 (C17); MED KIT NUMBER: 002-4861
     Route: 048
     Dates: start: 20221011
  2. TRIPTORELIN ACETATE [Concomitant]
     Active Substance: TRIPTORELIN ACETATE
     Indication: Hormone-refractory prostate cancer
     Route: 030
     Dates: start: 20211011, end: 20220424
  3. GOSERELIN [Concomitant]
     Active Substance: GOSERELIN
     Indication: Hormone-refractory prostate cancer
     Route: 058
     Dates: start: 20220525
  4. FLUNARIZINE HYDROCHLORIDE [Concomitant]
     Active Substance: FLUNARIZINE HYDROCHLORIDE
     Indication: Headache
     Route: 048
     Dates: start: 2015
  5. IBUPROFEN [Concomitant]
     Active Substance: IBUPROFEN
     Indication: Toothache
     Route: 048
     Dates: start: 20220828, end: 20220828
  6. IBUPROFEN [Concomitant]
     Active Substance: IBUPROFEN
     Route: 048
     Dates: start: 20221112
  7. ANALGIN [ACETYLSALICYLIC ACID;CAFFEINE;PARACETAMOL] [Concomitant]
     Indication: Pyrexia
     Route: 048
     Dates: start: 20221112, end: 20221112
  8. PURE ZINC [Concomitant]
     Dosage: 1 SACHET
     Route: 048
     Dates: start: 20230407

REACTIONS (1)
  - Gastritis erosive [Recovering/Resolving]

NARRATIVE: CASE EVENT DATE: 20230329
